FAERS Safety Report 7853611-5 (Version None)
Quarter: 2011Q4

REPORT INFORMATION
  Report Type: 
  Country: None (occurrence: None)
  Receive Date: 20111026
  Receipt Date: 20111019
  Transmission Date: 20120403
  Serious: Yes (Other)
  Sender: FDA-Public Use
  Company Number: GB-PFIZER INC-2011230766

PATIENT
  Age: 38 Year
  Sex: Male

DRUGS (2)
  1. VARENICLINE TARTRATE [Suspect]
     Indication: SMOKING CESSATION THERAPY
     Dosage: UNK
     Dates: start: 20101101
  2. VARENICLINE TARTRATE [Suspect]
     Dosage: UNK
     Dates: start: 20110601, end: 20110801

REACTIONS (3)
  - EPILEPSY [None]
  - CONVULSION [None]
  - ROAD TRAFFIC ACCIDENT [None]
